FAERS Safety Report 18245840 (Version 4)
Quarter: 2020Q4

REPORT INFORMATION
  Report Type: Report from Study
  Country: IL (occurrence: IL)
  Receive Date: 20200909
  Receipt Date: 20201027
  Transmission Date: 20210113
  Serious: Yes (Other)
  Sender: FDA-Public Use
  Company Number: IL-KARYOPHARM-2020KPT000970

PATIENT
  Age: 28 Year
  Sex: Male

DRUGS (1)
  1. SELINEXOR [Suspect]
     Active Substance: SELINEXOR
     Indication: GLIOBLASTOMA
     Dosage: 80 MG, WEEKLY
     Route: 048
     Dates: start: 20200804

REACTIONS (3)
  - Nausea [Recovered/Resolved]
  - Neoplasm progression [Unknown]
  - Intracranial tumour haemorrhage [Not Recovered/Not Resolved]

NARRATIVE: CASE EVENT DATE: 20200804
